FAERS Safety Report 5576692-0 (Version None)
Quarter: 2007Q4

REPORT INFORMATION
  Report Type: 
  Country: None (occurrence: None)
  Receive Date: 20071228
  Receipt Date: 20071221
  Transmission Date: 20080405
  Serious: Yes (Life-Threatening)
  Sender: FDA-Public Use
  Company Number: US-BAXTER-2007BH009938

PATIENT
  Sex: Female
  Weight: 1 kg

DRUGS (5)
  1. DEXTROSE [Suspect]
     Indication: BLOOD GLUCOSE DECREASED
     Dosage: DOSE UNIT:CUBIC CENTIMETER
     Route: 042
     Dates: start: 20071105, end: 20071105
  2. DEXTROSE [Suspect]
     Dosage: DOSE UNIT:CUBIC CENTIMETER
     Dates: start: 20071105, end: 20071105
  3. AQUAMEPHYTON [Concomitant]
     Indication: DRUG USE FOR UNKNOWN INDICATION
     Route: 065
     Dates: start: 20071105, end: 20071105
  4. EYE OINTMENT [Concomitant]
     Indication: DRUG USE FOR UNKNOWN INDICATION
     Route: 061
     Dates: start: 20071105, end: 20071105
  5. OXYGEN [Concomitant]
     Indication: DRUG USE FOR UNKNOWN INDICATION
     Route: 050
     Dates: start: 20071105, end: 20071105

REACTIONS (2)
  - CARDIO-RESPIRATORY ARREST [None]
  - LIVEDO RETICULARIS [None]
